FAERS Safety Report 14762522 (Version 1)
Quarter: 2018Q2

REPORT INFORMATION
  Report Type: Spontaneous
  Country: US (occurrence: US)
  Receive Date: 20180409
  Receipt Date: 20180409
  Transmission Date: 20180711
  Serious: Yes (Hospitalization)
  Sender: FDA-Public Use
  Company Number: None

PATIENT
  Age: 49 Year
  Sex: Male

DRUGS (8)
  1. RELISTOR [Concomitant]
     Active Substance: METHYLNALTREXONE BROMIDE
  2. METOCLOPRAM [Concomitant]
     Active Substance: METOCLOPRAMIDE
  3. BACLOFEN. [Concomitant]
     Active Substance: BACLOFEN
  4. POT CHLORI [Concomitant]
  5. CHLORPROMAZ [Concomitant]
  6. MORPHINE [Concomitant]
     Active Substance: MORPHINE
  7. AMLODIPINE [Concomitant]
     Active Substance: AMLODIPINE BESYLATE
  8. LONSURF [Suspect]
     Active Substance: TIPIRACIL HYDROCHLORIDE\TRIFLURIDINE
     Indication: COLON CANCER
     Dosage: 60MG BID DAYS 1-5/8-12 PO
     Route: 048
     Dates: start: 20180220

REACTIONS (1)
  - Hospitalisation [None]

NARRATIVE: CASE EVENT DATE: 20180405
